FAERS Safety Report 21917599 (Version 1)
Quarter: 2023Q1

REPORT INFORMATION
  Report Type: Spontaneous
  Country: GB (occurrence: GB)
  Receive Date: 20230127
  Receipt Date: 20230127
  Transmission Date: 20230417
  Serious: Yes (Hospitalization, Other)
  Sender: FDA-Public Use
  Company Number: GB-NOVOPROD-1013670

PATIENT
  Age: 57 Year
  Sex: Female
  Weight: 101 kg

DRUGS (4)
  1. OZEMPIC [Suspect]
     Active Substance: SEMAGLUTIDE
     Indication: Product used for unknown indication
     Dosage: 0.5 MG, QW
     Route: 058
     Dates: start: 20220729, end: 20221010
  2. INCLISIRAN [Suspect]
     Active Substance: INCLISIRAN
     Indication: Arteriosclerosis
     Dosage: 300 MG EVERY 180 DAYS
     Route: 058
     Dates: start: 20210916
  3. INCLISIRAN [Suspect]
     Active Substance: INCLISIRAN
     Dosage: UNK
     Route: 058
     Dates: start: 20221005
  4. ACETAMINOPHEN\CODEINE PHOSPHATE [Concomitant]
     Active Substance: ACETAMINOPHEN\CODEINE PHOSPHATE
     Indication: Product used for unknown indication
     Dosage: UNK
     Dates: start: 20190314

REACTIONS (3)
  - Gastroenteritis viral [Recovered/Resolved]
  - Diabetic ketoacidosis [Recovered/Resolved]
  - Inappropriate schedule of product administration [Unknown]

NARRATIVE: CASE EVENT DATE: 20221010
